FAERS Safety Report 7820397-X (Version None)
Quarter: 2011Q4

REPORT INFORMATION
  Report Type: 
  Country: None (occurrence: None)
  Receive Date: 20111018
  Receipt Date: 20111007
  Transmission Date: 20120403
  Serious: Yes (Other)
  Sender: FDA-Public Use
  Company Number: US-CELGENEUS-163-21880-11061221

PATIENT
  Sex: Male

DRUGS (39)
  1. NORVASC [Concomitant]
     Dosage: 5 MILLIGRAM
     Route: 048
  2. NITROLINGUAL [Concomitant]
     Dosage: .04 MILLIGRAM
  3. NOVOLIN 70/30 [Concomitant]
     Route: 065
  4. NITROGLYCERIN [Concomitant]
     Route: 065
  5. COUMADIN [Concomitant]
     Dosage: 7 MILLIGRAM
     Route: 048
     Dates: start: 20100621
  6. COUMADIN [Concomitant]
     Dosage: 6 MILLIGRAM
     Route: 048
     Dates: end: 20100526
  7. REVLIMID [Suspect]
     Dosage: 5 MILLIGRAM
     Route: 048
     Dates: start: 20110101
  8. LOVENOX [Concomitant]
     Route: 058
  9. PROZAC [Concomitant]
     Dosage: 40 MILLIGRAM
     Route: 048
  10. COUMADIN [Concomitant]
     Dosage: 8 MILLIGRAM
     Route: 048
  11. ASPIRIN [Concomitant]
     Dosage: 81 MILLIGRAM
     Route: 048
  12. AGGRENOX [Concomitant]
     Dosage: 25 MILLIGRAM
     Route: 048
  13. ALBUTEROL [Concomitant]
     Route: 055
  14. ACETAMINOPHEN AND HYDROCODONE BITARTRATE [Concomitant]
     Route: 048
  15. INSULIN [Concomitant]
     Dosage: 10 UNITS
     Route: 048
  16. POTASSIUM CHLORIDE [Concomitant]
     Dosage: 30 MILLIEQUIVALENTS
     Route: 048
  17. PENICILLIN V POTASSIUM [Concomitant]
     Dosage: 500 MILLIGRAM
     Route: 048
  18. REVLIMID [Suspect]
     Indication: MULTIPLE MYELOMA
     Dosage: 25 MILLIGRAM
     Route: 048
     Dates: start: 20091101
  19. METFORMIN HYDROCHLORIDE [Concomitant]
     Dosage: 500 MILLIGRAM
     Route: 048
  20. LIPITOR [Concomitant]
     Dosage: 80 MILLIGRAM
     Route: 048
  21. ISOSORBIDE DINITRATE [Concomitant]
     Dosage: 60 MILLIGRAM
     Route: 048
  22. ALPRAZOLAM [Concomitant]
     Route: 065
  23. OXYCODONE HCL AND ACETAMINOPHEN [Concomitant]
     Route: 048
  24. MAGIC MOUTHWASH [Concomitant]
     Route: 048
  25. PROVENTIL [Concomitant]
     Route: 065
  26. OXYCODONE HCL [Concomitant]
     Route: 065
  27. NIASPAN [Concomitant]
     Dosage: 1000 MILLIGRAM
     Route: 048
  28. LORCET-HD [Concomitant]
     Route: 065
  29. DECADRON [Concomitant]
     Dosage: 40 MILLIGRAM
     Route: 048
  30. COZAAR [Concomitant]
     Dosage: 50 MILLIGRAM
     Route: 048
  31. CLORAZEPATE DIPOTASSIUM [Concomitant]
     Route: 048
  32. XANAX [Concomitant]
     Route: 065
  33. PRILOSEC [Concomitant]
     Route: 065
  34. NASONEX [Concomitant]
     Route: 065
  35. DIFLUCAN [Concomitant]
     Route: 048
  36. RANEXA [Concomitant]
     Dosage: 500 MILLIGRAM
     Route: 048
  37. PCN [Concomitant]
     Route: 065
  38. ATENOLOL [Concomitant]
     Dosage: 50 MILLIGRAM
     Route: 048
  39. NEXIUM [Concomitant]
     Dosage: 40 MILLIGRAM
     Route: 048

REACTIONS (5)
  - HAEMORRHAGE [None]
  - INCREASED TENDENCY TO BRUISE [None]
  - FEELING ABNORMAL [None]
  - MALAISE [None]
  - PAIN IN EXTREMITY [None]
